FAERS Safety Report 8773841 (Version 1)
Quarter: 2012Q4

REPORT INFORMATION
  Report Type: 
  Country: US (occurrence: US)
  Receive Date: 20120907
  Receipt Date: 20120907
  Transmission Date: 20130627
  Serious: Yes (Other)
  Sender: FDA-Public Use
  Company Number: US-ROCHE-1100683

PATIENT
  Age: 63 Year
  Sex: Female

DRUGS (9)
  1. ACTIVASE [Suspect]
     Indication: ACUTE MYOCARDIAL INFARCTION
     Route: 065
     Dates: start: 19950118
  2. ACTIVASE [Suspect]
     Route: 065
  3. NITROGLYCERIN [Concomitant]
  4. ZANTAC [Concomitant]
  5. ZITHROMAX [Concomitant]
  6. ASPIRIN [Concomitant]
  7. HEPARIN [Concomitant]
  8. HUMULIN [Concomitant]
  9. K-DUR [Concomitant]

REACTIONS (1)
  - Chest pain [Unknown]
